FAERS Safety Report 9547690 (Version 1)
Quarter: 2013Q3

REPORT INFORMATION
  Report Type: Spontaneous
  Country: AU (occurrence: AU)
  Receive Date: 20130924
  Receipt Date: 20130924
  Transmission Date: 20140515
  Serious: Yes (Other)
  Sender: FDA-Public Use
  Company Number: PHHY2013AU099104

PATIENT
  Sex: Male

DRUGS (5)
  1. OCTREOTIDE [Suspect]
     Indication: THYMIC CANCER METASTATIC
     Dosage: UNK UKN, UNK
  2. OCTREOTIDE [Suspect]
     Indication: OFF LABEL USE
  3. DOXORUBICIN [Suspect]
     Indication: THYMIC CANCER METASTATIC
     Dosage: UNK UKN, UNK
  4. CYCLOPHOSPHAMIDE [Suspect]
     Indication: THYMIC CANCER METASTATIC
     Dosage: UNK UKN, UNK
  5. VINCRISTINE [Suspect]
     Indication: THYMIC CANCER METASTATIC
     Dosage: UNK UKN, UNK

REACTIONS (1)
  - Malignant neoplasm progression [Unknown]
